FAERS Safety Report 9542715 (Version 1)
Quarter: 2013Q3

REPORT INFORMATION
  Report Type: Report from Study
  Country: CA (occurrence: CA)
  Receive Date: 20130923
  Receipt Date: 20130923
  Transmission Date: 20140515
  Serious: Yes (Other)
  Sender: FDA-Public Use
  Company Number: CA-JNJFOC-20130910575

PATIENT
  Age: 56 Year
  Sex: Male
  Weight: 57 kg

DRUGS (11)
  1. REMICADE [Suspect]
     Indication: ANKYLOSING SPONDYLITIS
     Route: 042
     Dates: start: 20130916, end: 20130916
  2. REMICADE [Suspect]
     Indication: CROHN^S DISEASE
     Route: 042
     Dates: start: 20130916, end: 20130916
  3. VITAMIN B12 [Concomitant]
     Route: 065
  4. HYDROMORPH CONTIN [Concomitant]
     Route: 065
  5. HYDROMORPHONE [Concomitant]
     Route: 065
  6. QUETIAPINE [Concomitant]
     Route: 065
  7. FLUTICASONE [Concomitant]
     Dosage: NASAL VAPORIZATIONS
     Route: 045
  8. DIAZEPAM [Concomitant]
     Route: 065
  9. FLOVENT [Concomitant]
     Dosage: 2 PUFFUS TWO TIMES IN ONE DAY
     Route: 065
  10. VENTOLIN [Concomitant]
     Dosage: 2 PUFFS ONCE IN A DAY
     Route: 065
  11. SEROQUEL [Concomitant]
     Route: 065

REACTIONS (5)
  - Infusion related reaction [Recovered/Resolved]
  - Oxygen saturation decreased [Recovered/Resolved]
  - Dyspnoea [Recovered/Resolved]
  - Back pain [Recovered/Resolved]
  - Sense of oppression [Recovered/Resolved]
